FAERS Safety Report 8051168 (Version 3)
Quarter: 2014Q4

REPORT INFORMATION
  Report Type: Spontaneous
  Country: US (occurrence: US)
  Receive Date: 20110725
  Receipt Date: 20141205
  Transmission Date: 20150529
  Serious: Yes (Hospitalization)
  Sender: FDA-Public Use
  Company Number: US-BRISTOL-MYERS SQUIBB COMPANY-15597396

PATIENT
  Age: 84 Year
  Sex: Male
  Weight: 83.9 kg

DRUGS (6)
  1. AMBIEN [Concomitant]
     Active Substance: ZOLPIDEM TARTRATE
  2. COUMADIN [Suspect]
     Active Substance: WARFARIN SODIUM
     Indication: AORTIC VALVE REPLACEMENT
     Dosage: 1MG TABS, CHANGED TO 6 MG
     Route: 048
     Dates: start: 198503
  3. CARAFATE [Concomitant]
     Active Substance: SUCRALFATE
  4. TYLENOL [Concomitant]
     Active Substance: ACETAMINOPHEN
  5. COUMADIN [Suspect]
     Active Substance: WARFARIN SODIUM
     Indication: CORONARY ARTERY BYPASS
     Dosage: 1MG TABS, CHANGED TO 6 MG
     Route: 048
     Dates: start: 198503
  6. METOPROLOL [Concomitant]
     Active Substance: METOPROLOL

REACTIONS (4)
  - Gastric disorder [Unknown]
  - International normalised ratio increased [Unknown]
  - Migraine [Unknown]
  - Cerebral haemorrhage [Unknown]
